FAERS Safety Report 14852880 (Version 1)
Quarter: 2018Q2

REPORT INFORMATION
  Report Type: Spontaneous
  Country: NL (occurrence: NL)
  Receive Date: 20180507
  Receipt Date: 20180507
  Transmission Date: 20180711
  Serious: Yes (Hospitalization, Other)
  Sender: FDA-Public Use
  Company Number: NL-LINDE-NL-LHC-2018111

PATIENT
  Age: 32 Year
  Sex: Male

DRUGS (1)
  1. NITROUS OXIDE (GENERIC) [Suspect]
     Active Substance: NITROUS OXIDE
     Indication: AUDITORY DISORDER

REACTIONS (12)
  - Aortic thrombosis [Recovered/Resolved]
  - Eye movement disorder [Recovered/Resolved]
  - Post stroke epilepsy [Unknown]
  - Cerebral infarction [Recovered/Resolved]
  - Pulmonary embolism [Unknown]
  - Facial paresis [Recovered/Resolved]
  - Monoplegia [Recovered/Resolved]
  - Arterial occlusive disease [Recovered/Resolved]
  - Hyperhomocysteinaemia [Recovered/Resolved]
  - Vitamin B12 decreased [Recovered/Resolved]
  - Deep vein thrombosis [Unknown]
  - Drug abuse [Unknown]
